FAERS Safety Report 9107159 (Version 1)
Quarter: 2013Q1

REPORT INFORMATION
  Report Type: Spontaneous
  Country: IT (occurrence: IT)
  Receive Date: 20130221
  Receipt Date: 20130221
  Transmission Date: 20140127
  Serious: Yes (Hospitalization)
  Sender: FDA-Public Use
  Company Number: IT-TEVA-386933ISR

PATIENT
  Age: 82 Year
  Sex: Male
  Weight: 40 kg

DRUGS (14)
  1. LEVOFLOXACIN [Suspect]
     Indication: PNEUMONIA
     Dosage: 750 MILLIGRAM DAILY;
     Route: 048
     Dates: start: 20130125, end: 20130127
  2. TEFAMIN [Suspect]
     Indication: CHRONIC OBSTRUCTIVE PULMONARY DISEASE
     Dosage: 240 MILLIGRAM DAILY;
     Route: 042
     Dates: start: 20130125, end: 20130127
  3. ROCEFIN [Concomitant]
     Indication: PNEUMONIA
     Dates: start: 20130118, end: 20130125
  4. URBASON SOLUBILE [Concomitant]
     Dates: start: 20130125, end: 20130127
  5. LUVION [Concomitant]
  6. LASIX FIALE [Concomitant]
  7. ANTRA [Concomitant]
  8. CASODEX [Concomitant]
  9. TACHIPIRINA [Concomitant]
  10. DUROGESIC [Concomitant]
  11. CLENIL [Concomitant]
  12. BRONCOVALEAS [Concomitant]
  13. SPIRIVA [Concomitant]
  14. CALCIO GLUCONATO [Concomitant]

REACTIONS (1)
  - Epilepsy [Recovering/Resolving]
